FAERS Safety Report 20906132 (Version 1)
Quarter: 2022Q2

REPORT INFORMATION
  Report Type: Spontaneous
  Country: US (occurrence: US)
  Receive Date: 20220602
  Receipt Date: 20220602
  Transmission Date: 20220720
  Serious: No
  Sender: FDA-Public Use
  Company Number: US-COLLEGIUM PHARMACEUTICAL, INC.-2021CGM00706

PATIENT
  Sex: Female
  Weight: 45.351 kg

DRUGS (10)
  1. XTAMPZA ER [Suspect]
     Active Substance: OXYCODONE
     Indication: Pain
     Dosage: 13.5 MG, 2X/DAY (EVERY 12 HOURS)
     Route: 048
     Dates: start: 202012, end: 20210528
  2. XTAMPZA ER [Suspect]
     Active Substance: OXYCODONE
     Dosage: 13.5 MG, 1X/DAY
     Route: 048
     Dates: start: 20210529, end: 20210531
  3. PERCOCET [Concomitant]
     Active Substance: ACETAMINOPHEN\OXYCODONE HYDROCHLORIDE
     Dosage: 3 PILLS PER DAY
     Dates: end: 2021
  4. PERCOCET [Concomitant]
     Active Substance: ACETAMINOPHEN\OXYCODONE HYDROCHLORIDE
     Dosage: UP TO 6 TABLETS PER DAY
     Dates: start: 2021
  5. PREMARIN [Concomitant]
     Active Substance: ESTROGENS, CONJUGATED
  6. ASPIRIN [Concomitant]
     Active Substance: ASPIRIN
  7. WARFARIN [Concomitant]
     Active Substance: WARFARIN
  8. VITAMINS [Concomitant]
     Active Substance: VITAMINS
  9. ATORVASTATIN [Concomitant]
     Active Substance: ATORVASTATIN
  10. AMLODIPINE [Concomitant]
     Active Substance: AMLODIPINE BESYLATE

REACTIONS (8)
  - Confusional state [Recovered/Resolved]
  - Balance disorder [Recovered/Resolved]
  - Feeling hot [Recovered/Resolved]
  - Thinking abnormal [Recovered/Resolved]
  - Memory impairment [Recovered/Resolved]
  - Hyperhidrosis [Recovered/Resolved]
  - Vision blurred [Recovered/Resolved]
  - Overdose [Recovered/Resolved]

NARRATIVE: CASE EVENT DATE: 20210101
